FAERS Safety Report 15463491 (Version 2)
Quarter: 2018Q4

REPORT INFORMATION
  Report Type: Spontaneous
  Country: ZA (occurrence: ZA)
  Receive Date: 20181004
  Receipt Date: 20181008
  Transmission Date: 20190204
  Serious: Yes (Hospitalization)
  Sender: FDA-Public Use
  Company Number: ZA-ASTRAZENECA-2018SF25498

PATIENT
  Sex: Male

DRUGS (6)
  1. CARDURA XL [Suspect]
     Active Substance: DOXAZOSIN MESYLATE
     Route: 065
  2. HYPOTONE [Suspect]
     Active Substance: METHYLDOPA
     Route: 065
  3. EXFORGE [Suspect]
     Active Substance: AMLODIPINE BESYLATE\VALSARTAN
     Route: 065
  4. ZUVAMOR [Suspect]
     Active Substance: ROSUVASTATIN
     Route: 048
  5. ECOTRIN [Suspect]
     Active Substance: ASPIRIN
     Route: 065
  6. TETRALYSAL [LYMECYCLINE] [Suspect]
     Active Substance: LYMECYCLINE
     Route: 065

REACTIONS (1)
  - Blood pressure increased [Unknown]
